FAERS Safety Report 10205969 (Version 3)
Quarter: 2015Q4

REPORT INFORMATION
  Report Type: Report from Study
  Country: US (occurrence: US)
  Receive Date: 20140530
  Receipt Date: 20151102
  Transmission Date: 20160304
  Serious: Yes (Hospitalization, Other)
  Sender: FDA-Public Use
  Company Number: US-ROCHE-1341226

PATIENT
  Sex: Male
  Weight: 96.7 kg

DRUGS (18)
  1. PREDNISONE. [Concomitant]
     Active Substance: PREDNISONE
     Dosage: 2 PILLS IN THE MORNING AND 2 AT NIGHT
     Route: 065
  2. PEPCID [Concomitant]
     Active Substance: FAMOTIDINE
     Route: 048
  3. WARFARIN [Concomitant]
     Active Substance: WARFARIN
     Indication: HEART RATE IRREGULAR
     Route: 048
  4. BENADRYL [Concomitant]
     Active Substance: DIPHENHYDRAMINE HYDROCHLORIDE
     Route: 048
  5. KYTRIL [Concomitant]
     Active Substance: GRANISETRON HYDROCHLORIDE
     Route: 042
  6. OMEPRAZOLE. [Concomitant]
     Active Substance: OMEPRAZOLE
     Route: 048
  7. LEVOFLOXACIN. [Concomitant]
     Active Substance: LEVOFLOXACIN
     Indication: ANORECTAL INFECTION
     Dosage: ONCE DAY X 5 DAYS
     Route: 048
     Dates: start: 20130125
  8. DECADRON [Concomitant]
     Active Substance: DEXAMETHASONE
     Route: 042
  9. OXYCODONE [Concomitant]
     Active Substance: OXYCODONE
     Indication: PAIN
     Dosage: 5/325 MG AS NEEDED FOR PAIN
     Route: 065
  10. AVASTIN [Suspect]
     Active Substance: BEVACIZUMAB
     Indication: COLON CANCER
     Dosage: OFF AND ON SINCE FEB
     Route: 042
     Dates: start: 20130201
  11. XELODA [Suspect]
     Active Substance: CAPECITABINE
     Indication: LUNG NEOPLASM MALIGNANT
     Dosage: 08 TABLET DAILY FOR 14 DAYS THEN OFF FOR 7 DAY
     Route: 048
  12. DIGOXIN. [Concomitant]
     Active Substance: DIGOXIN
     Route: 048
     Dates: start: 2012
  13. IRINOTECAN [Concomitant]
     Active Substance: IRINOTECAN
     Route: 042
  14. ELOXATIN [Concomitant]
     Active Substance: OXALIPLATIN
     Route: 042
  15. HEPARIN [Concomitant]
     Active Substance: HEPARIN SODIUM
     Dosage: DOSE: 6 CC
     Route: 065
  16. KYTRIL [Concomitant]
     Active Substance: GRANISETRON HYDROCHLORIDE
     Route: 042
  17. XELODA [Suspect]
     Active Substance: CAPECITABINE
     Indication: COLON CANCER
     Dosage: 04 TABLET BID FOR 7 DAYS THEN OFF FOR 7 DAY
     Route: 048
     Dates: start: 201302
  18. AVASTIN [Suspect]
     Active Substance: BEVACIZUMAB
     Indication: LUNG NEOPLASM MALIGNANT
     Route: 042

REACTIONS (14)
  - Thrombosis [Recovered/Resolved]
  - Chills [Not Recovered/Not Resolved]
  - Peripheral coldness [Not Recovered/Not Resolved]
  - Diarrhoea [Not Recovered/Not Resolved]
  - Thyroid disorder [Unknown]
  - Thyroid cancer [Not Recovered/Not Resolved]
  - Abdominal pain upper [Recovering/Resolving]
  - Asthenia [Recovered/Resolved]
  - Paraesthesia [Recovering/Resolving]
  - Asthenia [Not Recovered/Not Resolved]
  - Anorectal infection [Not Recovered/Not Resolved]
  - Skin discolouration [Unknown]
  - Hiccups [Unknown]
  - Somnolence [Unknown]
